FAERS Safety Report 10503987 (Version 2)
Quarter: 2014Q4

REPORT INFORMATION
  Report Type: Spontaneous
  Country: IN (occurrence: IN)
  Receive Date: 20141008
  Receipt Date: 20141008
  Transmission Date: 20150528
  Serious: Yes (Other)
  Sender: FDA-Public Use
  Company Number: IN-RANBAXY-2014R1-81617

PATIENT
  Age: 60 Year
  Sex: Male

DRUGS (1)
  1. PEPTAC [Suspect]
     Active Substance: RANITIDINE HYDROCHLORIDE
     Indication: EPIGASTRIC DISCOMFORT
     Dosage: UNK
     Route: 042

REACTIONS (1)
  - Anaphylactic reaction [Recovering/Resolving]
